FAERS Safety Report 4583634-3 (Version None)
Quarter: 2005Q1

REPORT INFORMATION
  Report Type: 
  Country: None (occurrence: None)
  Receive Date: 20050211
  Receipt Date: 20050131
  Transmission Date: 20050727
  Serious: Yes (Hospitalization, Other)
  Sender: FDA-Public Use
  Company Number: HQWYE240412AUG04

PATIENT
  Age: 37 Year
  Sex: Female
  Weight: 50 kg

DRUGS (14)
  1. RAPAMUNE [Suspect]
     Indication: PROPHYLAXIS AGAINST TRANSPLANT REJECTION
     Dosage: 4 MG 1X PER 1 DAY, ORAL
     Route: 048
     Dates: start: 20040118
  2. PROGRAF [Suspect]
     Dosage: SEE IMAGE,  ORAL
     Route: 048
     Dates: end: 20040101
  3. PROGRAF [Suspect]
     Dosage: SEE IMAGE,  ORAL
     Route: 048
     Dates: start: 20050101
  4. PREDNISONE TAB [Concomitant]
  5. BACTRIM [Concomitant]
  6. NORVASC [Concomitant]
  7. VALCYTE [Concomitant]
  8. PROTONIX [Concomitant]
  9. MYCELEX [Concomitant]
  10. TENORMIN [Concomitant]
  11. XANAX [Concomitant]
  12. DARVOCET-N 50 [Concomitant]
  13. RESTORIL [Concomitant]
  14. PREVACID [Concomitant]

REACTIONS (3)
  - CONDITION AGGRAVATED [None]
  - HYPERTENSION [None]
  - PULMONARY OEDEMA [None]
